FAERS Safety Report 8547164-6 (Version None)
Quarter: 2012Q3

REPORT INFORMATION
  Report Type: 
  Country: None (occurrence: None)
  Receive Date: 20120727
  Receipt Date: 20120222
  Transmission Date: 20120928
  Serious: No
  Sender: FDA-Public Use
  Company Number: US-ASTRAZENECA-2012SE12218

PATIENT
  Sex: Male

DRUGS (13)
  1. SEROQUEL XR [Suspect]
     Route: 048
  2. SEROQUEL XR [Suspect]
     Route: 048
  3. SEROQUEL XR [Suspect]
     Route: 048
  4. BLOOD PRESSURE MEDICATION [Concomitant]
  5. SEROQUEL XR [Suspect]
     Route: 048
  6. SEROQUEL XR [Suspect]
     Route: 048
  7. SEROQUEL XR [Suspect]
     Route: 048
  8. SEROQUEL XR [Suspect]
     Route: 048
  9. SEROQUEL XR [Suspect]
     Route: 048
  10. SEROQUEL XR [Suspect]
     Indication: ANXIETY
     Route: 048
  11. SEROQUEL XR [Suspect]
     Indication: PANIC ATTACK
     Route: 048
  12. SEROQUEL XR [Suspect]
     Route: 048
  13. SEROQUEL XR [Suspect]
     Route: 048

REACTIONS (8)
  - WRONG TECHNIQUE IN DRUG USAGE PROCESS [None]
  - DIZZINESS [None]
  - DRUG DOSE OMISSION [None]
  - MUSCLE SPASMS [None]
  - FIBROMYALGIA [None]
  - SOMATOFORM DISORDER NEUROLOGIC [None]
  - OFF LABEL USE [None]
  - NEUROPATHY PERIPHERAL [None]
